FAERS Safety Report 15366576 (Version 1)
Quarter: 2018Q3

REPORT INFORMATION
  Report Type: Spontaneous
  Country: US (occurrence: US)
  Receive Date: 20180901
  Receipt Date: 20180901
  Transmission Date: 20181010
  Serious: Yes (Other)
  Sender: FDA-Public Use
  Company Number: None

PATIENT
  Age: 7 Year
  Sex: Female
  Weight: 18 kg

DRUGS (6)
  1. QVAR [Concomitant]
     Active Substance: BECLOMETHASONE DIPROPIONATE
  2. MONTELUKAST [Suspect]
     Active Substance: MONTELUKAST SODIUM
     Indication: ASTHMA
     Route: 048
     Dates: start: 20151103, end: 20160208
  3. MONTELUKAST [Suspect]
     Active Substance: MONTELUKAST SODIUM
     Indication: MULTIPLE ALLERGIES
     Route: 048
     Dates: start: 20151103, end: 20160208
  4. ALBUTEROL. [Concomitant]
     Active Substance: ALBUTEROL
  5. ELDERBERRY [Concomitant]
     Active Substance: HERBALS
  6. VITAMINS [Concomitant]
     Active Substance: VITAMINS

REACTIONS (8)
  - Sleep terror [None]
  - Depression [None]
  - Crying [None]
  - Skin abrasion [None]
  - Paranoia [None]
  - Anxiety [None]
  - Agitation [None]
  - Abnormal behaviour [None]

NARRATIVE: CASE EVENT DATE: 20160209
